FAERS Safety Report 19894711 (Version 2)
Quarter: 2023Q1

REPORT INFORMATION
  Report Type: Report from Study
  Country: HU (occurrence: HU)
  Receive Date: 20210929
  Receipt Date: 20230308
  Transmission Date: 20230417
  Serious: Yes (Other)
  Sender: FDA-Public Use
  Company Number: HU-NOVARTISPH-NVSC2021HU164214

PATIENT
  Age: 49 Year
  Sex: Female
  Weight: 72 kg

DRUGS (11)
  1. KISQALI [Suspect]
     Active Substance: RIBOCICLIB
     Indication: Breast cancer
     Dosage: 600 MG
     Route: 048
     Dates: start: 20210525, end: 20210615
  2. KISQALI [Suspect]
     Active Substance: RIBOCICLIB
     Dosage: 3 DF
     Route: 065
  3. KISQALI [Suspect]
     Active Substance: RIBOCICLIB
     Dosage: 2 DF (400 MG)
     Route: 065
  4. KISQALI [Suspect]
     Active Substance: RIBOCICLIB
     Dosage: 400 MG, QD
     Route: 048
     Dates: start: 20210622, end: 20210713
  5. KISQALI [Suspect]
     Active Substance: RIBOCICLIB
     Dosage: 400 MG
     Route: 048
     Dates: start: 20210720, end: 20210810
  6. KISQALI [Suspect]
     Active Substance: RIBOCICLIB
     Dosage: 1 DF
     Route: 065
     Dates: start: 20210824
  7. KISQALI [Suspect]
     Active Substance: RIBOCICLIB
     Dosage: 200 MG, QD
     Route: 048
     Dates: start: 20210824, end: 20210917
  8. FULVESTRANT [Suspect]
     Active Substance: FULVESTRANT
     Indication: Breast cancer
     Dosage: UNK 1 MULTIPLY 2 AMPOULE
     Route: 030
     Dates: start: 20210610, end: 20210610
  9. FULVESTRANT [Suspect]
     Active Substance: FULVESTRANT
     Dosage: UNK 1 MULTIPLY 2 AMPOULE
     Route: 030
     Dates: start: 20210622, end: 20210622
  10. FULVESTRANT [Suspect]
     Active Substance: FULVESTRANT
     Dosage: UNK 1 MULTIPLY 2 AMPOULE
     Route: 030
     Dates: start: 20210720, end: 20210720
  11. FULVESTRANT [Suspect]
     Active Substance: FULVESTRANT
     Dosage: UNK 1 MULTIPLY 2 AMPOULE
     Route: 030
     Dates: start: 20210817, end: 20210817

REACTIONS (10)
  - Leukaemia [Recovering/Resolving]
  - Neutropenia [Recovering/Resolving]
  - Malignant neoplasm progression [Unknown]
  - Breast cancer [Unknown]
  - Pain [Recovering/Resolving]
  - Musculoskeletal chest pain [Unknown]
  - Neutrophil count decreased [Unknown]
  - White blood cell count decreased [Unknown]
  - Bone pain [Unknown]
  - Back pain [Unknown]

NARRATIVE: CASE EVENT DATE: 20210101
